FAERS Safety Report 10402476 (Version 1)
Quarter: 2014Q3

REPORT INFORMATION
  Report Type: Spontaneous
  Country: US (occurrence: None)
  Receive Date: 20140821
  Receipt Date: 20140821
  Transmission Date: 20150326
  Serious: Yes (Death)
  Sender: FDA-Public Use
  Company Number: None

PATIENT
  Age: 63 Year
  Sex: Male

DRUGS (1)
  1. TIKOSYN [Suspect]
     Active Substance: DOFETILIDE
     Indication: ARRHYTHMIA
     Dosage: 1CAPSULE
     Route: 048
     Dates: start: 20130705, end: 20140401

REACTIONS (7)
  - Post procedural complication [None]
  - Renal failure [None]
  - Respiratory failure [None]
  - Cardiac failure [None]
  - Intestinal obstruction [None]
  - Gastrointestinal necrosis [None]
  - Blood pressure decreased [None]

NARRATIVE: CASE EVENT DATE: 20140406
